FAERS Safety Report 5483034-8 (Version None)
Quarter: 2007Q4

REPORT INFORMATION
  Report Type: 
  Country: None (occurrence: None)
  Receive Date: 20071011
  Receipt Date: 20071009
  Transmission Date: 20080405
  Serious: Yes (Hospitalization, Other)
  Sender: FDA-Public Use
  Company Number: US-SHR-US-2005-021070

PATIENT
  Age: 56 Year
  Sex: Female
  Weight: 51.247 kg

DRUGS (1)
  1. BETASERON [Suspect]
     Indication: MULTIPLE SCLEROSIS
     Dosage: 8 MIU, EVERY 2D
     Route: 058
     Dates: start: 19940101, end: 20060401

REACTIONS (5)
  - ACUTE RESPIRATORY DISTRESS SYNDROME [None]
  - INJECTION SITE INFECTION [None]
  - MULTIPLE SCLEROSIS [None]
  - OVARIAN MASS [None]
  - RESPIRATORY ARREST [None]
